FAERS Safety Report 8052710-5 (Version None)
Quarter: 2012Q1

REPORT INFORMATION
  Report Type: 
  Country: None (occurrence: None)
  Receive Date: 20120118
  Receipt Date: 20120118
  Transmission Date: 20120608
  Serious: Yes (Other)
  Sender: FDA-Public Use
  Company Number: None

PATIENT
  Age: 50 Year
  Sex: Female
  Weight: 52.163 kg

DRUGS (1)
  1. LEVOFLOXACIN [Suspect]
     Indication: URINARY TRACT INFECTION
     Dosage: 1
     Route: 048
     Dates: start: 20120114, end: 20120117

REACTIONS (5)
  - JOINT SWELLING [None]
  - HYPERSENSITIVITY [None]
  - MYALGIA [None]
  - COUGH [None]
  - FEELING HOT [None]
